FAERS Safety Report 5102136-9 (Version None)
Quarter: 2006Q3

REPORT INFORMATION
  Report Type: 
  Country: None (occurrence: None)
  Receive Date: 20060912
  Receipt Date: 20060904
  Transmission Date: 20061208
  Serious: Yes (Disabling)
  Sender: FDA-Public Use
  Company Number: PHNR2006AU01116

PATIENT
  Age: 76 Year
  Sex: Female

DRUGS (1)
  1. AREDIA [Suspect]
     Indication: BONE DISORDER
     Dosage: 1 TIME
     Route: 042
     Dates: start: 20060317, end: 20060317

REACTIONS (4)
  - ARTHRALGIA [None]
  - CONJUNCTIVITIS [None]
  - LYMPHADENOPATHY [None]
  - MYALGIA [None]
